FAERS Safety Report 8780672 (Version 2)
Quarter: 2012Q4

REPORT INFORMATION
  Report Type: 
  Country: VE (occurrence: VE)
  Receive Date: 20120913
  Receipt Date: 20120913
  Transmission Date: 20130627
  Serious: Yes (Hospitalization)
  Sender: FDA-Public Use
  Company Number: PHHY2012VE073720

PATIENT
  Age: 90 None
  Sex: Female

DRUGS (5)
  1. ONBREZ [Suspect]
     Indication: CHRONIC OBSTRUCTIVE PULMONARY DISEASE
     Dosage: UNK
  2. XOLAIR [Suspect]
     Dosage: UNK
     Dates: end: 20120823
  3. PULMICORT [Concomitant]
     Indication: PULMONARY HYPERTENSION
  4. BERODUAL [Concomitant]
     Indication: HYPOTHYROIDISM
  5. ANTIBIOTICS [Concomitant]

REACTIONS (7)
  - Pneumonia [Recovering/Resolving]
  - Arrhythmia [Recovering/Resolving]
  - Hypothyroidism [Recovering/Resolving]
  - Pulmonary hypertension [Recovering/Resolving]
  - Laryngitis [Recovering/Resolving]
  - Pyrexia [Recovering/Resolving]
  - Aphonia [Recovering/Resolving]
